FAERS Safety Report 24386233 (Version 1)
Quarter: 2024Q4

REPORT INFORMATION
  Report Type: Report from Study
  Country: GB (occurrence: GB)
  Receive Date: 20241001
  Receipt Date: 20241001
  Transmission Date: 20250115
  Serious: Yes (Hospitalization)
  Sender: SAMSUNG BIOEPIS
  Company Number: GB-SAMSUNG BIOEPIS-SB-2024-24863

PATIENT
  Age: 52 Year
  Sex: Female

DRUGS (1)
  1. IMRALDI [Suspect]
     Active Substance: ADALIMUMAB
     Indication: Rheumatoid arthritis
     Dosage: 40 MG/0.8 ML;
     Route: 058
     Dates: start: 20240614

REACTIONS (11)
  - Rheumatoid arthritis [Unknown]
  - Gastrointestinal infection [Unknown]
  - Gastroenteritis viral [Unknown]
  - Condition aggravated [Unknown]
  - Influenza like illness [Unknown]
  - Diarrhoea [Unknown]
  - White blood cell count increased [Unknown]
  - Emotional distress [Unknown]
  - Fine motor skill dysfunction [Unknown]
  - Device difficult to use [Unknown]
  - Device issue [Unknown]
